FAERS Safety Report 20222529 (Version 1)
Quarter: 2021Q4

REPORT INFORMATION
  Report Type: Spontaneous
  Country: US (occurrence: US)
  Receive Date: 20211223
  Receipt Date: 20211223
  Transmission Date: 20220304
  Serious: Yes (Life-Threatening, Hospitalization)
  Sender: FDA-Public Use
  Company Number: US-MYLANLABS-2021M1091026

PATIENT
  Age: 36 Year
  Sex: Male

DRUGS (1)
  1. FLUOROURACIL [Suspect]
     Active Substance: FLUOROURACIL
     Indication: Colorectal cancer
     Dosage: UNK, BOLUS
     Route: 065

REACTIONS (6)
  - Myocarditis [Recovered/Resolved]
  - Cardiac arrest [Recovered/Resolved]
  - Ventricular tachycardia [Recovered/Resolved]
  - Thrombosis [Recovered/Resolved]
  - Embolism [Recovered/Resolved]
  - Arteriospasm coronary [Recovered/Resolved]
